FAERS Safety Report 11463686 (Version 1)
Quarter: 2015Q3

REPORT INFORMATION
  Report Type: Spontaneous
  Country: US (occurrence: US)
  Receive Date: 20150831
  Receipt Date: 20150831
  Transmission Date: 20151125
  Serious: Yes (Other)
  Sender: FDA-Public Use
  Company Number: US-ELI_LILLY_AND_COMPANY-US201103004911

PATIENT
  Age: 59 Year
  Sex: Female
  Weight: 97.51 kg

DRUGS (4)
  1. LYRICA [Concomitant]
     Active Substance: PREGABALIN
     Indication: FIBROMYALGIA
     Dosage: 250 MG, DAILY (1/D)
  2. LYRICA [Concomitant]
     Active Substance: PREGABALIN
     Dosage: 75 MG, TID
  3. LYRICA [Concomitant]
     Active Substance: PREGABALIN
     Dosage: 50 MG, DAILY (1/D)
  4. CYMBALTA [Suspect]
     Active Substance: DULOXETINE HYDROCHLORIDE
     Indication: PAIN
     Dosage: 60MG

REACTIONS (6)
  - Decreased appetite [Unknown]
  - Mania [Unknown]
  - Contusion [Unknown]
  - Hyperhidrosis [Unknown]
  - Fibromyalgia [Unknown]
  - Insomnia [Unknown]
